FAERS Safety Report 18664132 (Version 2)
Quarter: 2021Q1

REPORT INFORMATION
  Report Type: Spontaneous
  Country: FR (occurrence: FR)
  Receive Date: 20201225
  Receipt Date: 20210128
  Transmission Date: 20210419
  Serious: Yes (Other)
  Sender: FDA-Public Use
  Company Number: FR-ROCHE-2738983

PATIENT
  Age: 7 Year
  Sex: Female
  Weight: 18.5 kg

DRUGS (2)
  1. ACTYNOX [Suspect]
     Active Substance: NITROUS OXIDE\OXYGEN
     Indication: ANAESTHESIA
     Dosage: 50 PERCENT /50 PERCENT V/V
     Route: 055
     Dates: start: 20201209
  2. VALIUM [Suspect]
     Active Substance: DIAZEPAM
     Indication: PROPHYLAXIS
     Route: 048
     Dates: start: 20201208, end: 20201209

REACTIONS (4)
  - Asthenia [Recovered/Resolved]
  - Hypotonia [Recovered/Resolved]
  - Vomiting [Recovered/Resolved]
  - Drug interaction [Unknown]

NARRATIVE: CASE EVENT DATE: 20201209
